FAERS Safety Report 25026151 (Version 1)
Quarter: 2025Q1

REPORT INFORMATION
  Report Type: Spontaneous
  Country: CN (occurrence: CN)
  Receive Date: 20250301
  Receipt Date: 20250301
  Transmission Date: 20250408
  Serious: Yes (Hospitalization, Other)
  Sender: JOHNSON AND JOHNSON
  Company Number: CN-JNJFOC-20250258763

PATIENT
  Age: 75 Year
  Sex: Female
  Weight: 52.4 kg

DRUGS (1)
  1. DARZALEX [Suspect]
     Active Substance: DARATUMUMAB
     Indication: Plasma cell myeloma
     Route: 041
     Dates: start: 20250121, end: 20250121

REACTIONS (1)
  - Blood albumin decreased [Recovering/Resolving]

NARRATIVE: CASE EVENT DATE: 20250216
